FAERS Safety Report 6760318-4 (Version None)
Quarter: 2010Q2

REPORT INFORMATION
  Report Type: 
  Country: None (occurrence: None)
  Receive Date: 20100608
  Receipt Date: 20100602
  Transmission Date: 20101027
  Serious: Yes (Death, Hospitalization)
  Sender: FDA-Public Use
  Company Number: US-SANOFI-AVENTIS-2010SA026816

PATIENT
  Sex: Male
  Weight: 92 kg

DRUGS (10)
  1. DOCETAXEL [Suspect]
     Indication: PROSTATE CANCER
     Route: 041
     Dates: start: 20100303, end: 20100303
  2. DOCETAXEL [Suspect]
     Route: 041
     Dates: start: 20100414, end: 20100414
  3. INVESTIGATIONAL DRUG [Suspect]
     Indication: PROSTATE CANCER
     Route: 048
     Dates: start: 20100303, end: 20100502
  4. PREDNISONE [Suspect]
     Indication: PROSTATE CANCER
     Route: 048
     Dates: start: 20100303, end: 20100502
  5. DEXAMETHASONE [Suspect]
     Indication: PREMEDICATION
     Dates: start: 20100303, end: 20100414
  6. ASPIRIN [Concomitant]
  7. HISTRELIN [Concomitant]
  8. REGLAN [Concomitant]
  9. SIMVASTATIN [Concomitant]
  10. ZOFRAN [Concomitant]

REACTIONS (2)
  - SEPSIS [None]
  - URINARY TRACT INFECTION [None]
